FAERS Safety Report 4415420-9 (Version None)
Quarter: 2004Q2

REPORT INFORMATION
  Report Type: 
  Country: None (occurrence: None)
  Receive Date: 20040621
  Receipt Date: 20031211
  Transmission Date: 20050107
  Serious: Yes (Death)
  Sender: FDA-Public Use
  Company Number: USA-2003-0012063

PATIENT
  Age: 37 Year
  Sex: Male

DRUGS (13)
  1. OXYCONTIN [Suspect]
     Indication: PAIN
     Dosage: 40 MG, Q12H,
     Dates: start: 20030901
  2. UNIPHYL [Concomitant]
  3. ZYPREXA [Concomitant]
  4. ADVAIR DISKUS 100/50 [Concomitant]
  5. NORVASC [Concomitant]
  6. NEURONTIN [Concomitant]
  7. ALTACE [Concomitant]
  8. SINGULAIR [Concomitant]
  9. CLONIDINE HCL [Concomitant]
  10. LASIX [Concomitant]
  11. SINEMET [Concomitant]
  12. CARBAMAZEPINE [Concomitant]
  13. LORTAB [Concomitant]

REACTIONS (2)
  - ACCIDENTAL OVERDOSE [None]
  - ARRHYTHMIA [None]
